FAERS Safety Report 9466660 (Version 1)
Quarter: 2013Q3

REPORT INFORMATION
  Report Type: Spontaneous
  Country: US (occurrence: None)
  Receive Date: 20130816
  Receipt Date: 20130816
  Transmission Date: 20140515
  Serious: Yes (Hospitalization)
  Sender: FDA-Public Use
  Company Number: None

PATIENT
  Age: 77 Year
  Sex: Female

DRUGS (10)
  1. LINZESS [Suspect]
     Indication: CONSTIPATION
     Dates: start: 20130813, end: 20130813
  2. DOCUSATE SODIUM [Concomitant]
  3. POTASSIUM [Concomitant]
  4. OMEPRAZOLE(PRILOSEC) [Concomitant]
  5. ACETAMINOPHEN WITH CODEINE PHOSPHATE [Concomitant]
  6. CHOLECALCIFEROL (VITAMIN D3) [Concomitant]
  7. ASPIRIN [Concomitant]
  8. CALCIUM CARBONATE [Concomitant]
  9. ALENDRONATE SODIUM [Concomitant]
  10. COLESEVELAM (WELCHOL) [Concomitant]

REACTIONS (5)
  - Diarrhoea [None]
  - Abdominal pain [None]
  - Vomiting [None]
  - Nausea [None]
  - Diarrhoea haemorrhagic [None]
